FAERS Safety Report 5775769-4 (Version None)
Quarter: 2008Q2

REPORT INFORMATION
  Report Type: 
  Country: None (occurrence: None)
  Receive Date: 20080617
  Receipt Date: 20080527
  Transmission Date: 20081010
  Serious: No
  Sender: FDA-Public Use
  Company Number: US-BOEHRINGER INGELHEIM GMBH, GERMANY-2008-BP-08268BP

PATIENT
  Age: 28 Year
  Sex: Male

DRUGS (2)
  1. MICARDIS HCT [Suspect]
     Indication: HYPERTENSION
  2. ATENOLOL [Concomitant]
     Indication: HYPERTENSION

REACTIONS (6)
  - ANGINA PECTORIS [None]
  - BRADYCARDIA [None]
  - DRUG INEFFECTIVE [None]
  - HEADACHE [None]
  - NAUSEA [None]
  - VERTIGO [None]
